FAERS Safety Report 9862986 (Version 2)
Quarter: 2014Q2

REPORT INFORMATION
  Report Type: Spontaneous
  Country: NL (occurrence: NL)
  Receive Date: 20140203
  Receipt Date: 20140424
  Transmission Date: 20141212
  Serious: Yes (Other)
  Sender: FDA-Public Use
  Company Number: NL-ROCHE-1338231

PATIENT
  Age: 82 Year
  Sex: Female

DRUGS (6)
  1. ROACTEMRA [Suspect]
     Indication: TEMPORAL ARTERITIS
     Route: 042
     Dates: start: 201303
  2. ROACTEMRA [Suspect]
     Route: 042
  3. ACENOCOUMAROL [Concomitant]
  4. SPIRIVA [Concomitant]
  5. ALENDRONIC ACID [Concomitant]
  6. FUROSEMIDE [Concomitant]

REACTIONS (2)
  - Hypertension [Not Recovered/Not Resolved]
  - Haematoma [Recovered/Resolved]
